FAERS Safety Report 17142291 (Version 1)
Quarter: 2019Q4

REPORT INFORMATION
  Report Type: Spontaneous
  Country: US (occurrence: US)
  Receive Date: 20191211
  Receipt Date: 20191211
  Transmission Date: 20200122
  Serious: No
  Sender: FDA-Public Use
  Company Number: US-JUBILANT CADISTA PHARMACEUTICALS-2019JUB00169

PATIENT
  Age: 38 Year
  Sex: Male
  Weight: 77.1 kg

DRUGS (3)
  1. METHYLPREDNISOLONE. [Suspect]
     Active Substance: METHYLPREDNISOLONE
     Indication: BACK PAIN
     Dosage: 24 MG TOTAL (8 MG BEFORE BREAKFAST, 4 MG AFTER LUNCH AND SUPPER, AND 8 MG AT BEDTIME)
     Route: 048
     Dates: start: 20190420, end: 20190420
  2. METHYLPREDNISOLONE. [Suspect]
     Active Substance: METHYLPREDNISOLONE
     Indication: MUSCLE SPASMS
     Dosage: 20 MG TOTAL (4 MG BEFORE BREAKFAST, 4 MG AT LUNCH AND SUPPER, AND 8 MG AT BEDTIME)
     Route: 048
     Dates: start: 20190421, end: 20190421
  3. ADVIL [Concomitant]
     Active Substance: IBUPROFEN

REACTIONS (4)
  - Insomnia [Unknown]
  - Hiccups [Recovered/Resolved]
  - Off label use [Recovered/Resolved]
  - Speech disorder [Recovered/Resolved]

NARRATIVE: CASE EVENT DATE: 20190420
